FAERS Safety Report 4879530-4 (Version None)
Quarter: 2006Q1

REPORT INFORMATION
  Report Type: 
  Country: None (occurrence: None)
  Receive Date: 20060111
  Receipt Date: 20051229
  Transmission Date: 20060701
  Serious: Yes (Disabling)
  Sender: FDA-Public Use
  Company Number: 33499

PATIENT
  Age: 68 Year
  Sex: Female

DRUGS (7)
  1. CILOXAN [Suspect]
     Dosage: OPHT
     Route: 047
     Dates: start: 20051107
  2. KETOROLAC TROMETHAMINE [Concomitant]
  3. TROPICAMIDE [Concomitant]
  4. PHENYLEPHRINE HYDROCHLORIDE [Concomitant]
  5. HYDROXYZINE HYDROCHLORIDE [Concomitant]
  6. ACETAZOLAMIDE [Concomitant]
  7. MEPIVACAINE HCL [Concomitant]

REACTIONS (3)
  - CORNEAL OEDEMA [None]
  - CORNEAL OPACITY [None]
  - VISUAL ACUITY REDUCED [None]
